FAERS Safety Report 5573790-2 (Version None)
Quarter: 2007Q4

REPORT INFORMATION
  Report Type: 
  Country: None (occurrence: None)
  Receive Date: 20071226
  Receipt Date: 20071101
  Transmission Date: 20080405
  Serious: Yes (Other)
  Sender: FDA-Public Use
  Company Number: US-PURDUE-USA_2007_0030752

PATIENT
  Sex: Male

DRUGS (6)
  1. OXYCONTIN [Suspect]
     Indication: PAIN
     Dosage: UNK, SEE TEXT
     Dates: start: 20001102, end: 20020331
  2. HYDROCHLOROTHIAZIDE [Concomitant]
  3. SERZONE [Concomitant]
  4. XANAX [Concomitant]
  5. CELEBREX [Concomitant]
  6. PAMELOR [Concomitant]

REACTIONS (5)
  - ANOREXIA [None]
  - DEPRESSION [None]
  - DRUG DEPENDENCE [None]
  - SEXUAL DYSFUNCTION [None]
  - SUICIDAL IDEATION [None]
